FAERS Safety Report 7743115-2 (Version None)
Quarter: 2011Q3

REPORT INFORMATION
  Report Type: 
  Country: None (occurrence: None)
  Receive Date: 20110912
  Receipt Date: 20110908
  Transmission Date: 20111222
  Serious: Yes (Death)
  Sender: FDA-Public Use
  Company Number: JP-ASTRAZENECA-2010SE35435

PATIENT
  Age: 24947 Day
  Sex: Male
  Weight: 68 kg

DRUGS (14)
  1. OLMESARTAN MEDOXOMIL [Concomitant]
     Route: 048
  2. MORPHINE [Concomitant]
     Route: 048
     Dates: start: 20100426
  3. IRESSA [Suspect]
     Indication: LUNG ADENOCARCINOMA
     Route: 048
     Dates: start: 20100424, end: 20100509
  4. MAGMITT [Concomitant]
     Route: 048
     Dates: start: 20090509
  5. MS CONTIN [Concomitant]
     Route: 048
     Dates: start: 20100422
  6. GRIMAC [Concomitant]
     Route: 048
     Dates: start: 20100506
  7. LOXONIN [Concomitant]
     Route: 048
     Dates: start: 20100419
  8. PANTOSIN [Concomitant]
     Route: 048
     Dates: start: 20100503
  9. MUCOSTA [Concomitant]
     Route: 048
     Dates: start: 20100419
  10. HUSTAZOL [Concomitant]
     Route: 048
     Dates: start: 20100421
  11. PYRINAZIN [Concomitant]
     Route: 048
     Dates: start: 20100506
  12. CEFTAZIDIME SODIUM [Concomitant]
     Route: 042
     Dates: start: 20100507
  13. GASPORT-D [Concomitant]
     Dosage: DOSE UNKNOWN
     Route: 048
  14. CEFOTIAM HYDROCHLORIDE [Concomitant]
     Route: 042
     Dates: start: 20100430

REACTIONS (1)
  - LUNG DISORDER [None]
